FAERS Safety Report 24287661 (Version 1)
Quarter: 2024Q3

REPORT INFORMATION
  Report Type: Spontaneous
  Country: US (occurrence: US)
  Receive Date: 20240905
  Receipt Date: 20240905
  Transmission Date: 20241017
  Serious: No
  Sender: SANDOZ
  Company Number: US-SANDOZ-SDZ2024US077299

PATIENT
  Sex: Female

DRUGS (12)
  1. CANAKINUMAB [Suspect]
     Active Substance: CANAKINUMAB
     Indication: Product used for unknown indication
     Dosage: UNK
     Route: 065
     Dates: start: 202302, end: 202304
  2. CYCLOSPORINE [Suspect]
     Active Substance: CYCLOSPORINE
     Indication: Product used for unknown indication
     Dosage: UNK
     Route: 065
     Dates: start: 202310
  3. METHOTREXATE SODIUM [Suspect]
     Active Substance: METHOTREXATE SODIUM
     Indication: Product used for unknown indication
     Dosage: UNK
     Route: 065
     Dates: start: 202301, end: 202305
  4. RUXOLITINIB [Suspect]
     Active Substance: RUXOLITINIB
     Indication: Product used for unknown indication
     Dosage: UNK
     Route: 065
     Dates: start: 202309
  5. SARILUMAB [Suspect]
     Active Substance: SARILUMAB
     Indication: Haematemesis
     Dosage: UNK
     Route: 065
     Dates: start: 202305, end: 202309
  6. SARILUMAB [Suspect]
     Active Substance: SARILUMAB
     Indication: Diarrhoea
  7. SARILUMAB [Suspect]
     Active Substance: SARILUMAB
     Indication: Nausea
  8. SARILUMAB [Suspect]
     Active Substance: SARILUMAB
     Indication: Pleuritic pain
  9. SARILUMAB [Suspect]
     Active Substance: SARILUMAB
     Indication: Pyrexia
  10. TOCILIZUMAB [Suspect]
     Active Substance: TOCILIZUMAB
     Indication: Product used for unknown indication
     Dosage: UNK
     Route: 065
     Dates: start: 202212, end: 202301
  11. VOCLOSPORIN [Suspect]
     Active Substance: VOCLOSPORIN
     Indication: Product used for unknown indication
     Dosage: UNK
     Route: 065
     Dates: start: 202310
  12. VORICONAZOLE [Concomitant]
     Active Substance: VORICONAZOLE
     Indication: Aspergillus infection
     Route: 065

REACTIONS (1)
  - Nausea [Recovered/Resolved]
